FAERS Safety Report 22071487 (Version 13)
Quarter: 2024Q4

REPORT INFORMATION
  Report Type: Report from Study
  Country: US (occurrence: US)
  Receive Date: 20230307
  Receipt Date: 20241126
  Transmission Date: 20250115
  Serious: Yes (Hospitalization, Other)
  Sender: JAZZ
  Company Number: US-JAZZ PHARMACEUTICALS-2023-US-005236

PATIENT
  Sex: Female

DRUGS (15)
  1. XYREM [Suspect]
     Active Substance: SODIUM OXYBATE
     Indication: Narcolepsy
     Dosage: UNK
     Dates: start: 2018
  2. XYREM [Suspect]
     Active Substance: SODIUM OXYBATE
     Indication: Cataplexy
     Dosage: UNK
  3. XYREM [Suspect]
     Active Substance: SODIUM OXYBATE
     Indication: Somnolence
     Dosage: 3.5 MILLIGRAM, BID
  4. ZITHROMAX [Suspect]
     Active Substance: AZITHROMYCIN DIHYDRATE
     Indication: Product used for unknown indication
     Dosage: UNK
  5. LACTASE PLUS [Concomitant]
     Indication: Product used for unknown indication
     Dosage: UNK
     Dates: start: 20060101
  6. OMEPRAZOLE [Concomitant]
     Active Substance: OMEPRAZOLE
     Indication: Product used for unknown indication
     Dosage: UNK
     Dates: start: 20230220
  7. ONDANSETRON HYDROCHLORIDE [Concomitant]
     Active Substance: ONDANSETRON HYDROCHLORIDE
     Indication: Product used for unknown indication
     Dosage: UNK
     Dates: start: 20230220
  8. ATORVASTATIN [Concomitant]
     Active Substance: ATORVASTATIN
     Indication: Product used for unknown indication
     Dosage: UNK
     Dates: start: 20230316
  9. METRONIDAZOLE [Concomitant]
     Active Substance: METRONIDAZOLE
     Indication: Product used for unknown indication
     Dosage: UNK
     Dates: start: 20230317
  10. KETOROLAC [Concomitant]
     Active Substance: KETOROLAC TROMETHAMINE
     Indication: Product used for unknown indication
     Dosage: UNK
     Dates: start: 20231126
  11. DOXYCYCLINE HYCLATE [Concomitant]
     Active Substance: DOXYCYCLINE HYCLATE
     Indication: Product used for unknown indication
     Dosage: UNK
     Dates: start: 20231122
  12. AZITHROMYCIN [Concomitant]
     Active Substance: AZITHROMYCIN
     Indication: Product used for unknown indication
     Dosage: UNK
     Dates: start: 20231122
  13. IOPAMIDOL [Concomitant]
     Active Substance: IOPAMIDOL
     Indication: Product used for unknown indication
     Dosage: UNK
     Dates: start: 20231126
  14. NORETHINDRONE ACETATE [Concomitant]
     Active Substance: NORETHINDRONE ACETATE
     Indication: Product used for unknown indication
     Dosage: UNK
  15. NASONEX [Concomitant]
     Active Substance: MOMETASONE FUROATE
     Indication: Product used for unknown indication

REACTIONS (22)
  - Hospitalisation [Unknown]
  - Abortion spontaneous [Unknown]
  - Inflammatory bowel disease [Unknown]
  - Coeliac disease [Unknown]
  - Sepsis [Recovering/Resolving]
  - Metabolic dysfunction-associated liver disease [Recovering/Resolving]
  - Haematuria [Recovering/Resolving]
  - Victim of sexual abuse [Unknown]
  - Acquired thalassaemia [Unknown]
  - Illness [Unknown]
  - Postural orthostatic tachycardia syndrome [Recovering/Resolving]
  - Post-traumatic stress disorder [Unknown]
  - Blood iron decreased [Unknown]
  - Panic attack [Unknown]
  - Nausea [Unknown]
  - Vomiting [Unknown]
  - Pharyngeal swelling [Recovering/Resolving]
  - Blood cholesterol increased [Unknown]
  - Bursitis [Unknown]
  - Therapeutic product effect variable [Unknown]
  - Exposure during pregnancy [Unknown]
  - Product administration interrupted [Unknown]

NARRATIVE: CASE EVENT DATE: 20230101
